FAERS Safety Report 5651787-1 (Version None)
Quarter: 2008Q1

REPORT INFORMATION
  Report Type: 
  Country: None (occurrence: None)
  Receive Date: 20080305
  Receipt Date: 20080222
  Transmission Date: 20080703
  Serious: Yes (Disabling, Other)
  Sender: FDA-Public Use
  Company Number: GB-PFIZER INC-2008017706

PATIENT
  Age: 51 Year
  Sex: Male

DRUGS (4)
  1. NIFEDIPINE [Suspect]
     Route: 048
  2. ATENOLOL [Suspect]
     Route: 048
  3. BENDROFLUMETHIAZIDE [Concomitant]
     Route: 048
  4. LISINOPRIL [Concomitant]
     Route: 048

REACTIONS (1)
  - BACK PAIN [None]
